FAERS Safety Report 4907308-1 (Version None)
Quarter: 2006Q1

REPORT INFORMATION
  Report Type: 
  Country: None (occurrence: None)
  Receive Date: 20060208
  Receipt Date: 20060208
  Transmission Date: 20060701
  Serious: Yes (Hospitalization)
  Sender: FDA-Public Use
  Company Number: None

PATIENT
  Age: 86 Year
  Sex: Male
  Weight: 87 kg

DRUGS (11)
  1. METOPROLOL SUCCINATE EXTENDED RELEASE [Suspect]
     Indication: HYPERTENSION
     Dosage: 25 MG PO DAILY
     Route: 048
     Dates: start: 20050602, end: 20051006
  2. ASPIRIN [Concomitant]
  3. AZATHIOPRINE [Concomitant]
  4. PREDNISONE [Concomitant]
  5. CALCIUM + VIT D [Concomitant]
  6. M.V.I. [Concomitant]
  7. BACTRIM [Concomitant]
  8. SYNTHROID [Concomitant]
  9. OMEPRAZOLE [Concomitant]
  10. EPOGEN [Concomitant]
  11. IRON [Concomitant]

REACTIONS (4)
  - BRADYCARDIA [None]
  - CONDUCTION DISORDER [None]
  - FATIGUE [None]
  - FEELING ABNORMAL [None]
